FAERS Safety Report 7542449-4 (Version None)
Quarter: 2011Q2

REPORT INFORMATION
  Report Type: 
  Country: None (occurrence: None)
  Receive Date: 20110613
  Receipt Date: 20110505
  Transmission Date: 20111010
  Serious: No
  Sender: FDA-Public Use
  Company Number: A0926068A

PATIENT
  Age: 57 Year
  Sex: Female

DRUGS (1)
  1. NICORETTE (MINT) [Suspect]
     Route: 002
     Dates: start: 20110428, end: 20110428

REACTIONS (6)
  - SALIVA ALTERED [None]
  - RETCHING [None]
  - DYSGEUSIA [None]
  - MALAISE [None]
  - NAUSEA [None]
  - SENSORY DISTURBANCE [None]
